FAERS Safety Report 16893512 (Version 2)
Quarter: 2019Q4

REPORT INFORMATION
  Report Type: Spontaneous
  Country: RU (occurrence: RU)
  Receive Date: 20191008
  Receipt Date: 20191114
  Transmission Date: 20200122
  Serious: Yes (Hospitalization, Other)
  Sender: FDA-Public Use
  Company Number: RU-TEVA-2019-RU-1118301

PATIENT
  Age: 72 Year
  Sex: Female

DRUGS (3)
  1. CARDIOMAGNYL [Suspect]
     Active Substance: ASPIRIN\MAGNESIUM HYDROXIDE
     Indication: HYPERTENSION
     Route: 065
  2. AMLODIPINE-TEVA 5MG [Suspect]
     Active Substance: AMLODIPINE BESYLATE
     Indication: HYPERTENSION
     Route: 065
     Dates: end: 201910
  3. LOZAP 50MG [Suspect]
     Active Substance: LOSARTAN POTASSIUM
     Indication: HYPERTENSION
     Route: 065

REACTIONS (6)
  - Malaise [Recovering/Resolving]
  - Hypertension [Recovering/Resolving]
  - Arrhythmia [Unknown]
  - Cataract [Unknown]
  - Blood pressure increased [Recovered/Resolved]
  - Angina pectoris [Recovered/Resolved]

NARRATIVE: CASE EVENT DATE: 201910
